FAERS Safety Report 23952793 (Version 1)
Quarter: 2024Q2

REPORT INFORMATION
  Report Type: Spontaneous
  Country: US (occurrence: None)
  Receive Date: 20240607
  Receipt Date: 20240607
  Transmission Date: 20240716
  Serious: No
  Sender: FDA-Public Use
  Company Number: None

PATIENT
  Age: 66 Year
  Sex: 0

DRUGS (1)
  1. JAKAFI [Suspect]
     Active Substance: RUXOLITINIB

REACTIONS (4)
  - Dizziness [None]
  - Dysarthria [None]
  - Contusion [None]
  - Coordination abnormal [None]

NARRATIVE: CASE EVENT DATE: 20240607
